APPROVED DRUG PRODUCT: CYCLOPHOSPHAMIDE
Active Ingredient: CYCLOPHOSPHAMIDE
Strength: 1GM/VIAL
Dosage Form/Route: INJECTABLE;INJECTION
Application: A216958 | Product #002 | TE Code: AP
Applicant: HIKMA PHARMACEUTICALS USA INC
Approved: Dec 18, 2023 | RLD: No | RS: No | Type: RX